FAERS Safety Report 4624006-2 (Version None)
Quarter: 2005Q1

REPORT INFORMATION
  Report Type: 
  Country: None (occurrence: None)
  Receive Date: 20050329
  Receipt Date: 20050225
  Transmission Date: 20050727
  Serious: No
  Sender: FDA-Public Use
  Company Number: 171434

PATIENT
  Age: 46 Year
  Sex: Female

DRUGS (6)
  1. AVONEX [Suspect]
     Indication: RELAPSING-REMITTING MULTIPLE SCLEROSIS
     Dosage: 30 UG; QW; IM
     Route: 030
     Dates: start: 19981001, end: 19990401
  2. AVONEX [Suspect]
     Indication: RELAPSING-REMITTING MULTIPLE SCLEROSIS
     Dosage: 30 UG; QW; IM
     Route: 030
     Dates: start: 20000101, end: 20030101
  3. AVONEX [Suspect]
     Indication: RELAPSING-REMITTING MULTIPLE SCLEROSIS
     Dosage: 30 UG; QW; IM
     Route: 030
     Dates: start: 20030101
  4. LUTENYL [Concomitant]
  5. RIVOTRIL [Concomitant]
  6. PROGESTERONE [Concomitant]

REACTIONS (12)
  - ARTHRALGIA [None]
  - BLOOD ALBUMIN INCREASED [None]
  - CONSTIPATION [None]
  - CYTOLYTIC HEPATITIS [None]
  - DRUG INTERACTION [None]
  - DYSPEPSIA [None]
  - FEELING COLD [None]
  - GILBERT'S SYNDROME [None]
  - HEPATOTOXICITY [None]
  - NAUSEA [None]
  - RAYNAUD'S PHENOMENON [None]
  - WEIGHT DECREASED [None]
